FAERS Safety Report 7881767-7 (Version None)
Quarter: 2011Q4

REPORT INFORMATION
  Report Type: 
  Country: None (occurrence: None)
  Receive Date: 20111101
  Receipt Date: 20110526
  Transmission Date: 20120403
  Serious: No
  Sender: FDA-Public Use
  Company Number: US-AMGEN-USASP2011027681

PATIENT
  Age: 46 Year
  Sex: Female

DRUGS (3)
  1. ENBREL [Suspect]
     Indication: PSORIASIS
  2. ENBREL [Suspect]
     Indication: PSORIATIC ARTHROPATHY
     Dosage: 50 MG, QWK
     Dates: start: 19960101
  3. TREXALL [Concomitant]
     Dosage: 1 MG, UNK

REACTIONS (11)
  - GENERAL PHYSICAL HEALTH DETERIORATION [None]
  - ARTHRALGIA [None]
  - PSORIATIC ARTHROPATHY [None]
  - BONE OPERATION [None]
  - FATIGUE [None]
  - BONE PAIN [None]
  - STRESS [None]
  - OEDEMA PERIPHERAL [None]
  - PRURITUS [None]
  - PAIN IN EXTREMITY [None]
  - PYREXIA [None]
